FAERS Safety Report 13406584 (Version 1)
Quarter: 2017Q2

REPORT INFORMATION
  Report Type: Spontaneous
  Country: US (occurrence: US)
  Receive Date: 20170405
  Receipt Date: 20170405
  Transmission Date: 20170830
  Serious: No
  Sender: FDA-Public Use
  Company Number: US-SA-2016SA079855

PATIENT
  Age: 3 Year
  Sex: Male

DRUGS (2)
  1. ALLEGRA [Suspect]
     Active Substance: FEXOFENADINE HYDROCHLORIDE
     Indication: RHINORRHOEA
     Route: 065
     Dates: start: 20160325
  2. ALLEGRA [Suspect]
     Active Substance: FEXOFENADINE HYDROCHLORIDE
     Indication: NASAL PRURITUS
     Route: 065
     Dates: start: 20160325

REACTIONS (1)
  - Drug ineffective [Unknown]
